FAERS Safety Report 12084890 (Version 1)
Quarter: 2016Q1

REPORT INFORMATION
  Report Type: Report from Study
  Country: US (occurrence: US)
  Receive Date: 20160217
  Receipt Date: 20160217
  Transmission Date: 20160526
  Serious: Yes (Hospitalization)
  Sender: FDA-Public Use
  Company Number: US-TAKEDA-2016MPI000900

PATIENT
  Age: 65 Year
  Sex: Male
  Weight: 98.18 kg

DRUGS (4)
  1. VELCADE [Suspect]
     Active Substance: BORTEZOMIB
     Indication: LYMPHOMA
     Dosage: 1.6 MG/M2, UNK
     Route: 065
     Dates: start: 20151201, end: 20160126
  2. OFATUMUMAB [Suspect]
     Active Substance: OFATUMUMAB
     Indication: LYMPHOMA
     Dosage: 300 MG, UNK
     Route: 042
     Dates: start: 20151201
  3. BENDAMUSTINE [Suspect]
     Active Substance: BENDAMUSTINE
     Indication: LYMPHOMA
     Dosage: 90 MG/M2, UNK
     Route: 042
     Dates: start: 20151201, end: 20160113
  4. OFATUMUMAB [Suspect]
     Active Substance: OFATUMUMAB
     Dosage: 1000 UNK, UNK
     Route: 042
     Dates: end: 20160112

REACTIONS (2)
  - Dyspnoea [Recovered/Resolved with Sequelae]
  - Non-cardiac chest pain [Recovered/Resolved with Sequelae]

NARRATIVE: CASE EVENT DATE: 20160202
